FAERS Safety Report 5793740-3 (Version None)
Quarter: 2008Q2

REPORT INFORMATION
  Report Type: 
  Country: None (occurrence: None)
  Receive Date: 20080627
  Receipt Date: 20080620
  Transmission Date: 20081010
  Serious: Yes (Life-Threatening, Hospitalization)
  Sender: FDA-Public Use
  Company Number: US-GENENTECH-244665

PATIENT
  Sex: Female
  Weight: 63.1 kg

DRUGS (16)
  1. BEVACIZUMAB [Suspect]
     Indication: COLORECTAL CANCER
     Dosage: 5 MG, BID
     Route: 042
     Dates: start: 20060503, end: 20061226
  2. AG-013736 [Suspect]
     Indication: COLORECTAL CANCER
     Dosage: 5 MG, BID
     Route: 048
     Dates: start: 20060531, end: 20061226
  3. FLUOROURACIL [Suspect]
     Indication: COLORECTAL CANCER
     Dosage: 3024 MG, QOW
     Route: 042
     Dates: start: 20060530, end: 20061226
  4. OXALIPLATIN [Suspect]
     Indication: COLORECTAL CANCER
     Dosage: 142.8 MG, QOW
     Route: 042
     Dates: start: 20060530, end: 20061226
  5. LEUCOVORIN [Suspect]
     Indication: COLORECTAL CANCER
     Dosage: 704 MG, SINGLE
     Route: 042
     Dates: start: 20060530, end: 20061226
  6. LEUCOVORIN [Suspect]
     Dosage: 696 MG, SINGLE
     Route: 042
     Dates: start: 20060620, end: 20060620
  7. LEUCOVORIN [Suspect]
     Dosage: 684 MG, SINGLE
     Route: 042
     Dates: start: 20060703, end: 20060703
  8. LEUCOVORIN [Suspect]
     Dosage: 519 MG, SINGLE
     Route: 042
     Dates: start: 20060717, end: 20060717
  9. LEUCOVORIN [Suspect]
     Dosage: 513 MG, SINGLE
     Route: 042
     Dates: start: 20060814, end: 20060814
  10. LEUCOVORIN [Suspect]
     Dosage: 504 MG, SINGLE
     Route: 042
     Dates: start: 20060828, end: 20060828
  11. LEUCOVORIN [Suspect]
     Dosage: 504 MG, SINGLE
     Route: 042
     Dates: start: 20060918, end: 20060918
  12. LISINOPRIL [Concomitant]
     Indication: DRUG USE FOR UNKNOWN INDICATION
     Route: 048
     Dates: start: 20060101
  13. METFORMIN HCL [Concomitant]
     Indication: DRUG USE FOR UNKNOWN INDICATION
     Route: 048
     Dates: start: 20060717
  14. PROTONIX [Concomitant]
     Indication: DRUG USE FOR UNKNOWN INDICATION
     Route: 048
     Dates: start: 20060717
  15. ASPIRIN [Concomitant]
     Indication: DRUG USE FOR UNKNOWN INDICATION
     Route: 048
     Dates: start: 20060719
  16. NORVASC [Concomitant]
     Indication: DRUG USE FOR UNKNOWN INDICATION
     Route: 048
     Dates: start: 20060613

REACTIONS (3)
  - ACIDOSIS [None]
  - LIVER FUNCTION TEST ABNORMAL [None]
  - RESPIRATORY FAILURE [None]
